FAERS Safety Report 8960056 (Version 1)
Quarter: 2012Q4

REPORT INFORMATION
  Report Type: 
  Country: US (occurrence: US)
  Receive Date: 20121212
  Receipt Date: 20121212
  Transmission Date: 20130627
  Serious: No
  Sender: FDA-Public Use
  Company Number: US-MYLANLABS-2012S1001487

PATIENT
  Age: 57 Year
  Sex: Female

DRUGS (4)
  1. SOTRADECOL [Suspect]
     Indication: VARICOSE VEIN
     Route: 042
     Dates: start: 20120119, end: 20120119
  2. ZOLOFT [Concomitant]
  3. VERAPAMIL [Concomitant]
  4. PRAVACHOL [Concomitant]

REACTIONS (6)
  - Hypersensitivity [Recovered/Resolved]
  - Hypoaesthesia [Recovered/Resolved]
  - Vision blurred [Recovered/Resolved]
  - Aphasia [Recovered/Resolved]
  - Headache [Recovered/Resolved]
  - Flushing [Recovered/Resolved]
